FAERS Safety Report 4693944-7 (Version None)
Quarter: 2005Q2

REPORT INFORMATION
  Report Type: 
  Country: None (occurrence: None)
  Receive Date: 20050616
  Receipt Date: 20050601
  Transmission Date: 20051028
  Serious: Yes (Life-Threatening, Other)
  Sender: FDA-Public Use
  Company Number: CIP05000818

PATIENT
  Age: 78 Year
  Sex: Female
  Weight: 64.9 kg

DRUGS (13)
  1. ASACOL [Suspect]
     Indication: COLITIS
     Dosage: 2400 MG DAILY, ORAL
     Route: 048
     Dates: start: 20041201, end: 20050313
  2. PREDNISONE [Suspect]
     Dosage: ORAL
     Route: 048
     Dates: start: 20041201, end: 20050314
  3. ADVAIR (SALMETEROL XINAFOATE, FLUTICASONE PROPIONATE) [Suspect]
     Dosage: 500/50 MG TWICE DAILY, ORAL
     Route: 048
     Dates: end: 20050209
  4. COZAAR [Concomitant]
  5. BENICAR [Concomitant]
  6. ACIPHEX [Concomitant]
  7. PANCREASE (PANCRELIPASE) [Concomitant]
  8. SLOW-MAG (MAGNESIUM CHLORIDE ANHYDROUS) [Concomitant]
  9. SINGULAIR (MONTELUKAST) [Concomitant]
  10. PREMPRO [Concomitant]
  11. FEOSOL (FERROUS SULFATE) [Concomitant]
  12. POTASSIUM CHLORIDE [Concomitant]
  13. TYLENOL [Concomitant]

REACTIONS (30)
  - AGRANULOCYTOSIS [None]
  - ANAEMIA [None]
  - ASTHENIA [None]
  - ATELECTASIS [None]
  - BACK PAIN [None]
  - BICYTOPENIA [None]
  - BILIARY TRACT DISORDER [None]
  - BONE MARROW DEPRESSION [None]
  - CARDIAC FAILURE CONGESTIVE [None]
  - COLITIS [None]
  - COUGH [None]
  - DEHYDRATION [None]
  - DEPRESSION [None]
  - ERYTHEMA [None]
  - FAECES DISCOLOURED [None]
  - FATIGUE [None]
  - LEUKOPENIA [None]
  - LUNG CREPITATION [None]
  - MITRAL VALVE INCOMPETENCE [None]
  - MOUTH PLAQUE [None]
  - MOUTH ULCERATION [None]
  - NECK PAIN [None]
  - NEUTROPENIA [None]
  - OEDEMA PERIPHERAL [None]
  - PAIN IN EXTREMITY [None]
  - PLEURAL EFFUSION [None]
  - RENAL FAILURE [None]
  - TONGUE ULCERATION [None]
  - TRICUSPID VALVE INCOMPETENCE [None]
  - WEIGHT INCREASED [None]
